FAERS Safety Report 11294635 (Version 1)
Quarter: 2015Q3

REPORT INFORMATION
  Report Type: Report from Study
  Country: AR (occurrence: AR)
  Receive Date: 20150722
  Receipt Date: 20150722
  Transmission Date: 20151125
  Serious: Yes (Other)
  Sender: FDA-Public Use
  Company Number: PHHY2015AR084383

PATIENT
  Sex: Female

DRUGS (2)
  1. DIOVAN [Suspect]
     Active Substance: VALSARTAN
     Indication: HYPERTENSION
     Dosage: 2 DF, UNK
     Route: 048
  2. DIOVAN [Suspect]
     Active Substance: VALSARTAN
     Indication: HYPERTENSION
     Dosage: 80 OT, UNK
     Route: 048

REACTIONS (14)
  - Hyperglycaemia [Recovered/Resolved]
  - Cerebellar ischaemia [Recovered/Resolved]
  - Nervousness [Recovered/Resolved]
  - Quadriplegia [Recovered/Resolved]
  - Cataract [Recovered/Resolved]
  - Diarrhoea [Recovered/Resolved]
  - Wrong technique in product usage process [Recovered/Resolved]
  - Cerebral ischaemia [Recovered/Resolved]
  - Visual acuity reduced [Recovered/Resolved]
  - Cardiac failure [Recovered/Resolved]
  - Blood cholesterol increased [Recovered/Resolved]
  - Dyspepsia [Recovered/Resolved]
  - Blood pressure increased [Recovered/Resolved]
  - Cerebrovascular accident [Recovered/Resolved]

NARRATIVE: CASE EVENT DATE: 2011
